FAERS Safety Report 4615444-2 (Version None)
Quarter: 2005Q1

REPORT INFORMATION
  Report Type: 
  Country: None (occurrence: None)
  Receive Date: 20050322
  Receipt Date: 20040105
  Transmission Date: 20050727
  Serious: Yes (Hospitalization)
  Sender: FDA-Public Use
  Company Number: US-ABBOTT-04P-163-0246133-00

PATIENT
  Sex: Male

DRUGS (8)
  1. FERO-GRAD-500 [Suspect]
     Indication: MINERAL SUPPLEMENTATION
     Route: 048
     Dates: start: 20031208, end: 20031210
  2. KAXOLATE [Concomitant]
     Indication: BLOOD POTASSIUM INCREASED
     Route: 048
     Dates: start: 20021201, end: 20031201
  3. EPOGEN [Concomitant]
     Indication: ANAEMIA
     Route: 048
     Dates: start: 20010101
  4. RAMIPRIL [Concomitant]
     Indication: HEART RATE IRREGULAR
  5. DILTIAZEM HYDROCHLORIDE [Concomitant]
     Indication: HEART RATE IRREGULAR
  6. AMLODIPINE BESYLATE [Concomitant]
  7. WARFARIN [Concomitant]
     Indication: HEART RATE IRREGULAR
  8. LEVOBUNOLOL [Concomitant]
     Indication: GLAUCOMA

REACTIONS (4)
  - BLOOD POTASSIUM INCREASED [None]
  - CONSTIPATION [None]
  - HAEMODIALYSIS [None]
  - RENAL FAILURE [None]
